FAERS Safety Report 4711087-0 (Version None)
Quarter: 2005Q3

REPORT INFORMATION
  Report Type: 
  Country: None (occurrence: None)
  Receive Date: 20050708
  Receipt Date: 20050628
  Transmission Date: 20060218
  Serious: Yes (Hospitalization, Other)
  Sender: FDA-Public Use
  Company Number: 2005082131

PATIENT
  Age: 61 Year
  Sex: Female
  Weight: 48 kg

DRUGS (6)
  1. IDARUBICIN HCL [Suspect]
     Indication: MYELOID LEUKAEMIA
     Dosage: 1.5 GRAM (15 MG, CYCLIC), INTRAVENOUS
     Route: 042
     Dates: start: 20050519
  2. CYTARABINE [Suspect]
     Indication: MYELOID LEUKAEMIA
     Dosage: 1.5 GRAM (1500 MG, CYCLIC), INTRAVENOUS
     Route: 042
     Dates: start: 20050519
  3. METHYLPREDNISOLONE ACETATE [Suspect]
     Indication: ILL-DEFINED DISORDER
     Dosage: INTRAVENOUS
     Route: 042
     Dates: start: 20050519
  4. ONDANSETRON HCL [Suspect]
     Indication: ILL-DEFINED DISORDER
     Dosage: INTRAVENOUS
     Route: 042
     Dates: start: 20050519
  5. RANITIDINE HYDROCHLORIDE [Suspect]
     Indication: ILL-DEFINED DISORDER
     Dosage: 100 MG, INTRAVENOUS
     Route: 042
     Dates: start: 20050519
  6. NEFOPAM (NEFOPAM) [Suspect]
     Indication: ILL-DEFINED DISORDER
     Dosage: INTRAVENOUS
     Route: 042
     Dates: start: 20050519

REACTIONS (2)
  - CHEST WALL PAIN [None]
  - PLEURAL EFFUSION [None]
